FAERS Safety Report 5092705-7 (Version None)
Quarter: 2006Q3

REPORT INFORMATION
  Report Type: 
  Country: None (occurrence: None)
  Receive Date: 20060830
  Receipt Date: 20060809
  Transmission Date: 20061208
  Serious: Yes (Hospitalization)
  Sender: FDA-Public Use
  Company Number: PHBS2006JP12100

PATIENT
  Age: 20 Year
  Sex: Female

DRUGS (2)
  1. CYCLOSPORINE [Suspect]
     Indication: STEVENS-JOHNSON SYNDROME
     Route: 048
  2. MINOCYCLINE HCL [Suspect]
     Indication: MYCOPLASMA INFECTION
     Route: 048

REACTIONS (7)
  - BLOOD BILIRUBIN INCREASED [None]
  - BLOOD CHOLESTEROL INCREASED [None]
  - HEPATIC FUNCTION ABNORMAL [None]
  - LIVER DISORDER [None]
  - TRANSAMINASES INCREASED [None]
  - VANISHING BILE DUCT SYNDROME [None]
  - XANTHOMA [None]
